FAERS Safety Report 19384204 (Version 1)
Quarter: 2021Q2

REPORT INFORMATION
  Report Type: Spontaneous
  Country: DE (occurrence: DE)
  Receive Date: 20210608
  Receipt Date: 20210608
  Transmission Date: 20210717
  Serious: Yes (Other)
  Sender: FDA-Public Use
  Company Number: DE-UCBSA-2021026918

PATIENT
  Age: 30 Year
  Sex: Female

DRUGS (1)
  1. VIMPAT [Suspect]
     Active Substance: LACOSAMIDE
     Indication: PRODUCT USED FOR UNKNOWN INDICATION
     Dosage: 200MG IN AM AND 250MG AT PM

REACTIONS (5)
  - Trigeminal neuralgia [Unknown]
  - Epilepsy [Unknown]
  - Drug dependence [Unknown]
  - Off label use [Unknown]
  - Overdose [Unknown]
